FAERS Safety Report 25475063 (Version 1)
Quarter: 2025Q2

REPORT INFORMATION
  Report Type: Report from Study
  Country: US (occurrence: US)
  Receive Date: 20250624
  Receipt Date: 20250624
  Transmission Date: 20250717
  Serious: Yes (Other)
  Sender: AMGEN
  Company Number: US-AMGEN-USASL2025078590

PATIENT
  Sex: Female

DRUGS (3)
  1. SOTORASIB [Suspect]
     Active Substance: SOTORASIB
     Indication: Breast cancer female
     Dosage: 960 MILLIGRAM, QD
     Route: 065
     Dates: start: 20250219
  2. SOTORASIB [Suspect]
     Active Substance: SOTORASIB
     Indication: Lung neoplasm malignant
     Route: 065
  3. SOTORASIB [Suspect]
     Active Substance: SOTORASIB
     Route: 065

REACTIONS (4)
  - Lung neoplasm malignant [Unknown]
  - Breast cancer female [Unknown]
  - Fatigue [Unknown]
  - Somnolence [Unknown]
